FAERS Safety Report 9164865 (Version 1)
Quarter: 2013Q1

REPORT INFORMATION
  Report Type: Spontaneous
  Country: CN (occurrence: CN)
  Receive Date: 20130315
  Receipt Date: 20130315
  Transmission Date: 20140127
  Serious: Yes (Other)
  Sender: FDA-Public Use
  Company Number: CN-JNJFOC-20130304400

PATIENT
  Sex: 0

DRUGS (1)
  1. TOPAMAX [Suspect]
     Indication: EPILEPSY
     Route: 048

REACTIONS (9)
  - Drug ineffective [Unknown]
  - Learning disorder [Unknown]
  - Aphasia [Unknown]
  - Slow response to stimuli [Unknown]
  - Decreased appetite [Unknown]
  - Weight decreased [Unknown]
  - Dizziness [Unknown]
  - Fatigue [Unknown]
  - Anhidrosis [Unknown]
